FAERS Safety Report 18819445 (Version 1)
Quarter: 2021Q1

REPORT INFORMATION
  Report Type: Spontaneous
  Country: US (occurrence: US)
  Receive Date: 20210202
  Receipt Date: 20210202
  Transmission Date: 20210419
  Serious: Yes (Other)
  Sender: FDA-Public Use
  Company Number: US-US-PROVELL PHARMACEUTICALS LLC-9215111

PATIENT
  Sex: Female

DRUGS (1)
  1. EUTHYROX [Suspect]
     Active Substance: LEVOTHYROXINE SODIUM
     Indication: THYROID DISORDER

REACTIONS (6)
  - Alopecia [Unknown]
  - Urticaria [Unknown]
  - Blood thyroid stimulating hormone increased [Unknown]
  - Angioedema [Unknown]
  - Asthenia [Unknown]
  - Dry skin [Unknown]

NARRATIVE: CASE EVENT DATE: 20200901
